FAERS Safety Report 17099926 (Version 1)
Quarter: 2019Q4

REPORT INFORMATION
  Report Type: Spontaneous
  Country: US (occurrence: US)
  Receive Date: 20191202
  Receipt Date: 20191202
  Transmission Date: 20200122
  Serious: No
  Sender: FDA-Public Use
  Company Number: US-HORIZON-PEN-0995-2019

PATIENT
  Age: 47 Year
  Sex: Male

DRUGS (1)
  1. PENNSAID [Suspect]
     Active Substance: DICLOFENAC SODIUM
     Indication: ARTHRALGIA
     Dosage: APPLY TWO PUMPS TO AFFECTED KNEE(S) BID

REACTIONS (6)
  - Nausea [Unknown]
  - Malaise [Unknown]
  - Hyperhidrosis [Unknown]
  - Headache [Unknown]
  - Vomiting [Unknown]
  - Eye pain [Unknown]
